FAERS Safety Report 15255957 (Version 1)
Quarter: 2018Q3

REPORT INFORMATION
  Report Type: Spontaneous
  Country: US (occurrence: US)
  Receive Date: 20180808
  Receipt Date: 20180808
  Transmission Date: 20181010
  Serious: No
  Sender: FDA-Public Use
  Company Number: US-BAYER-2018-144912

PATIENT
  Age: 33 Year
  Sex: Male
  Weight: 58 kg

DRUGS (1)
  1. ALEVE [Suspect]
     Active Substance: NAPROXEN SODIUM
     Dosage: 4 DF, UNK
     Route: 048
     Dates: start: 20180801

REACTIONS (3)
  - Product use in unapproved indication [Unknown]
  - Incorrect dosage administered [Unknown]
  - Binocular eye movement disorder [Not Recovered/Not Resolved]

NARRATIVE: CASE EVENT DATE: 20180801
